FAERS Safety Report 11510460 (Version 2)
Quarter: 2015Q3

REPORT INFORMATION
  Report Type: Report from Study
  Country: US (occurrence: US)
  Receive Date: 20150915
  Receipt Date: 20150924
  Transmission Date: 20151125
  Serious: Yes (Other)
  Sender: FDA-Public Use
  Company Number: US-AMGEN-USASL2015089967

PATIENT
  Age: 67 Year
  Sex: Male
  Weight: 87.98 kg

DRUGS (4)
  1. LISINOPRIL. [Concomitant]
     Active Substance: LISINOPRIL
     Dosage: 40 MG, QD
     Route: 048
  2. NPLATE [Suspect]
     Active Substance: ROMIPLOSTIM
     Indication: PRODUCT USED FOR UNKNOWN INDICATION
     Dosage: 175 MUG, QWK
     Route: 058
     Dates: start: 201211
  3. AMLODIPINE BESYLATE. [Concomitant]
     Active Substance: AMLODIPINE BESYLATE
     Dosage: 10 MG, QD
     Route: 048
     Dates: start: 20130429
  4. JANTOVEN [Concomitant]
     Active Substance: WARFARIN SODIUM
     Dosage: 10 MG, QD
     Route: 048
     Dates: start: 20101001

REACTIONS (5)
  - Laceration [Unknown]
  - Platelet count decreased [Unknown]
  - Contusion [Unknown]
  - Dizziness [Unknown]
  - Traumatic haemorrhage [Unknown]
